FAERS Safety Report 8543177-9 (Version None)
Quarter: 2012Q3

REPORT INFORMATION
  Report Type: 
  Country: None (occurrence: None)
  Receive Date: 20120727
  Receipt Date: 20120717
  Transmission Date: 20120928
  Serious: Yes (Other)
  Sender: FDA-Public Use
  Company Number: US-JNJFOC-20120710778

PATIENT
  Age: 81 Year
  Sex: Male
  Weight: 90.72 kg

DRUGS (7)
  1. EXTRA STRENGTH TYLENOL [Suspect]
     Indication: SLEEP DISORDER THERAPY
     Dosage: 2 CAPLETS 2 TIMES DAILY, WITHIN 4 HOURS
     Route: 048
  2. SYNTHROID [Concomitant]
     Indication: HYPOTHYROIDISM
     Route: 065
  3. DIGOXIN [Concomitant]
     Indication: CARDIAC DISORDER
     Route: 065
  4. ACETAMINOPHEN [Suspect]
     Indication: PRODUCT USED FOR UNKNOWN INDICATION
     Dosage: CVS BRAND
     Route: 065
  5. COUMADIN [Interacting]
     Indication: CARDIAC DISORDER
     Route: 065
  6. LIPITOR [Concomitant]
     Indication: BLOOD CHOLESTEROL INCREASED
     Route: 065
  7. METOPROLOL SUCCINATE [Concomitant]
     Indication: HYPERTENSION
     Route: 065

REACTIONS (7)
  - INAPPROPRIATE SCHEDULE OF DRUG ADMINISTRATION [None]
  - DRUG DEPENDENCE [None]
  - ANTICOAGULATION DRUG LEVEL ABOVE THERAPEUTIC [None]
  - SOMNAMBULISM [None]
  - HYPERTENSION [None]
  - DRUG ADMINISTRATION ERROR [None]
  - DRUG INTERACTION [None]
